FAERS Safety Report 18795286 (Version 1)
Quarter: 2021Q1

REPORT INFORMATION
  Report Type: Spontaneous
  Country: IT (occurrence: IT)
  Receive Date: 20210127
  Receipt Date: 20210127
  Transmission Date: 20210419
  Serious: Yes (Hospitalization)
  Sender: FDA-Public Use
  Company Number: IT-ASTRAZENECA-2021A009805

PATIENT
  Age: 48 Year
  Sex: Female

DRUGS (4)
  1. BROMAZEPAM [Suspect]
     Active Substance: BROMAZEPAM
     Indication: SUICIDE ATTEMPT
     Dosage: OVERDOSE 10 ML 1/ (10 ML, TOTAL (HALF A VIAL))
     Route: 065
     Dates: start: 20201219, end: 20201219
  2. ZOLPIDEM TARTRATE. [Suspect]
     Active Substance: ZOLPIDEM TARTRATE
     Indication: SUICIDE ATTEMPT
     Dosage: OVERDOSE 40 MG, TOTAL (4 TABLETS)
     Route: 065
     Dates: start: 20201219, end: 20201219
  3. VALIUM [Suspect]
     Active Substance: DIAZEPAM
     Indication: SUICIDE ATTEMPT
     Dosage: OVERDOSE 2 ML, TOTAL (1 VIAL)
     Route: 065
     Dates: start: 20201219, end: 20201219
  4. QUETIAPINE. [Suspect]
     Active Substance: QUETIAPINE
     Indication: SUICIDE ATTEMPT
     Dosage: OVERDOSE 150 MG, TOTAL (6 TABLETS)
     Route: 065
     Dates: start: 20201219, end: 20201219

REACTIONS (2)
  - Tachycardia [Unknown]
  - Intentional overdose [Unknown]

NARRATIVE: CASE EVENT DATE: 20201219
